FAERS Safety Report 4545064-X (Version None)
Quarter: 2004Q4

REPORT INFORMATION
  Report Type: 
  Country: None (occurrence: None)
  Receive Date: 20041230
  Receipt Date: 20041216
  Transmission Date: 20050328
  Serious: Yes (Hospitalization)
  Sender: FDA-Public Use
  Company Number: 205735

PATIENT
  Sex: Female

DRUGS (2)
  1. AVONEX [Suspect]
     Indication: MULTIPLE SCLEROSIS
     Dosage: 30 UG; QW; IM
     Route: 030
     Dates: start: 20031005, end: 20041020
  2. VITAMIN B-12 [Concomitant]

REACTIONS (8)
  - CHEST PAIN [None]
  - DEPRESSED MOOD [None]
  - MUSCLE ATROPHY [None]
  - OEDEMA PERIPHERAL [None]
  - PULMONARY THROMBOSIS [None]
  - RED BLOOD CELL SEDIMENTATION RATE INCREASED [None]
  - SUICIDAL IDEATION [None]
  - THROMBOSIS [None]
